FAERS Safety Report 16052865 (Version 1)
Quarter: 2019Q1

REPORT INFORMATION
  Report Type: Report from Study
  Country: CA (occurrence: CA)
  Receive Date: 20190308
  Receipt Date: 20190308
  Transmission Date: 20190418
  Serious: Yes (Other)
  Sender: FDA-Public Use
  Company Number: CA-JNJFOC-20181227993

PATIENT
  Age: 44 Year
  Sex: Female

DRUGS (2)
  1. IMURAN [Suspect]
     Active Substance: AZATHIOPRINE
     Indication: PRODUCT USED FOR UNKNOWN INDICATION
     Route: 065
  2. REMICADE [Suspect]
     Active Substance: INFLIXIMAB
     Indication: CROHN^S DISEASE
     Route: 042
     Dates: start: 20180614

REACTIONS (6)
  - Haemorrhoids [Not Recovered/Not Resolved]
  - Carpal tunnel syndrome [Unknown]
  - Constipation [Not Recovered/Not Resolved]
  - Abdominal pain upper [Unknown]
  - Systemic lupus erythematosus [Unknown]
  - Trismus [Recovering/Resolving]

NARRATIVE: CASE EVENT DATE: 20181213
